FAERS Safety Report 8845370 (Version 1)
Quarter: 2012Q4

REPORT INFORMATION
  Report Type: 
  Country: US (occurrence: US)
  Receive Date: 20121017
  Receipt Date: 20121017
  Transmission Date: 20130627
  Serious: No
  Sender: FDA-Public Use
  Company Number: US-009507513-1210USA003098

PATIENT
  Sex: Female

DRUGS (11)
  1. VICTRELIS [Suspect]
     Indication: HEPATITIS C
     Dosage: 800 mg, tid
     Route: 048
  2. PEGASYS [Suspect]
     Dosage: UNK
     Dates: start: 20120629
  3. RIBASPHERE [Suspect]
     Dosage: UNK
     Dates: start: 20120629
  4. SINGULAIR [Concomitant]
     Route: 048
  5. DIOVAN HCT [Concomitant]
  6. ASACOL [Concomitant]
  7. ADVAIR [Concomitant]
  8. RANITIDINE [Concomitant]
  9. ALBUTEROL SULFATE [Concomitant]
  10. OMEGA-3 MARINE TRIGLYCERIDES [Concomitant]
  11. CALCIUM (UNSPECIFIED) [Concomitant]

REACTIONS (1)
  - Anaemia [Not Recovered/Not Resolved]
